FAERS Safety Report 4373049-5 (Version None)
Quarter: 2004Q2

REPORT INFORMATION
  Report Type: 
  Country: None (occurrence: None)
  Receive Date: 20040603
  Receipt Date: 20040512
  Transmission Date: 20050107
  Serious: Yes (Hospitalization, Disabling, Other)
  Sender: FDA-Public Use
  Company Number: US_0405103070

PATIENT
  Sex: Female

DRUGS (4)
  1. ZYPREXA [Suspect]
     Indication: MAJOR DEPRESSION
  2. ZYPREXA [Suspect]
     Indication: OBSESSIVE-COMPULSIVE DISORDER
  3. INSULIN [Concomitant]
  4. GLUCOVANCE [Concomitant]

REACTIONS (11)
  - ACTIVITIES OF DAILY LIVING IMPAIRED [None]
  - ARTHRITIS [None]
  - AUTONOMIC NEUROPATHY [None]
  - CHRONIC OBSTRUCTIVE AIRWAYS DISEASE [None]
  - DIABETES MELLITUS [None]
  - DIABETIC NEUROPATHY [None]
  - HEPATITIS C [None]
  - HEPATITIS CHRONIC ACTIVE [None]
  - HYPOTHYROIDISM [None]
  - SKIN ULCER [None]
  - URINARY INCONTINENCE [None]
